FAERS Safety Report 4612925-2 (Version None)
Quarter: 2005Q1

REPORT INFORMATION
  Report Type: 
  Country: None (occurrence: None)
  Receive Date: 20050318
  Receipt Date: 20050212
  Transmission Date: 20050727
  Serious: Yes (Other)
  Sender: FDA-Public Use
  Company Number: JP-ROCHE-395534

PATIENT
  Age: 64 Year
  Sex: Male

DRUGS (9)
  1. PEGASYS [Suspect]
     Indication: HEPATITIS C
     Route: 058
     Dates: start: 20040124, end: 20040221
  2. PEGASYS [Suspect]
     Route: 058
     Dates: start: 20040228, end: 20040821
  3. PHENOBAL [Concomitant]
     Route: 048
     Dates: start: 20020119
  4. GASTER [Concomitant]
     Route: 048
     Dates: start: 20021128
  5. ULGUT [Concomitant]
     Route: 048
     Dates: start: 20021128
  6. STROCAIN [Concomitant]
     Route: 048
     Dates: start: 20021128
  7. RESTAMIN [Concomitant]
     Route: 061
     Dates: start: 20031025
  8. POLARAMINE [Concomitant]
     Route: 048
     Dates: start: 20040221, end: 20040703
  9. UREA [Concomitant]
     Route: 061
     Dates: start: 20040501

REACTIONS (1)
  - CEREBRAL INFARCTION [None]
